FAERS Safety Report 16779690 (Version 1)
Quarter: 2019Q3

REPORT INFORMATION
  Report Type: Spontaneous
  Country: US (occurrence: US)
  Receive Date: 20190906
  Receipt Date: 20190906
  Transmission Date: 20191005
  Serious: No
  Sender: FDA-Public Use
  Company Number: US-LEO PHARMA-324056

PATIENT
  Age: 43 Year
  Sex: Female

DRUGS (1)
  1. DAIVOBET [Suspect]
     Active Substance: BETAMETHASONE DIPROPIONATE\CALCIPOTRIENE
     Indication: PRODUCT USED FOR UNKNOWN INDICATION
     Dosage: CALCIPOTRIENE 0.005% AND BETAMETHASONE DIPROPIONATE 0.064%
     Route: 061

REACTIONS (1)
  - Drug ineffective [Unknown]
